FAERS Safety Report 15263549 (Version 1)
Quarter: 2018Q3

REPORT INFORMATION
  Report Type: Spontaneous
  Country: AU (occurrence: AU)
  Receive Date: 20180810
  Receipt Date: 20180810
  Transmission Date: 20181010
  Serious: Yes (Disabling)
  Sender: FDA-Public Use
  Company Number: AU-009507513-1808AUS002873

PATIENT
  Age: 51 Year
  Sex: Female

DRUGS (2)
  1. NOVASONE [Suspect]
     Active Substance: MOMETASONE FUROATE
     Indication: DERMATITIS ALLERGIC
  2. NOVASONE [Suspect]
     Active Substance: MOMETASONE FUROATE
     Indication: DERMATITIS ATOPIC
     Dosage: 0.1 %, ONE APPLICATION, DAILY AND MORE OFTEN AS REQUIRED
     Route: 061
     Dates: start: 19810101, end: 20160401

REACTIONS (3)
  - Skin burning sensation [Not Recovered/Not Resolved]
  - Skin exfoliation [Not Recovered/Not Resolved]
  - Erythema [Not Recovered/Not Resolved]

NARRATIVE: CASE EVENT DATE: 201505
